FAERS Safety Report 6224697-9 (Version None)
Quarter: 2009Q2

REPORT INFORMATION
  Report Type: 
  Country: None (occurrence: None)
  Receive Date: 20090612
  Receipt Date: 20090325
  Transmission Date: 20091009
  Serious: No
  Sender: FDA-Public Use
  Company Number: US-ABBOTT-09P-163-0564858-00

PATIENT
  Sex: Female
  Weight: 59.928 kg

DRUGS (9)
  1. HUMIRA [Suspect]
     Indication: RHEUMATOID ARTHRITIS
     Route: 058
     Dates: start: 20090202
  2. HUMIRA [Suspect]
     Dosage: SYRINGE
     Route: 058
     Dates: start: 20020101, end: 20090202
  3. HUMIRA [Suspect]
     Route: 058
  4. ARICEPT [Concomitant]
     Indication: MEMORY IMPAIRMENT
  5. NAMENDA [Concomitant]
     Indication: MEMORY IMPAIRMENT
     Route: 048
  6. METHOTREXATE [Concomitant]
     Indication: RHEUMATOID ARTHRITIS
     Route: 048
  7. SIMVASTATIN [Concomitant]
     Indication: BLOOD CHOLESTEROL INCREASED
  8. CALTRATE [Concomitant]
     Indication: MINERAL SUPPLEMENTATION
     Dosage: UNKNOWN
     Route: 048
  9. MULTIPLE VITAMINS [Concomitant]
     Indication: MEDICAL DIET
     Route: 048

REACTIONS (1)
  - CONTUSION [None]
